FAERS Safety Report 9052523 (Version 3)
Quarter: 2013Q1

REPORT INFORMATION
  Report Type: Spontaneous
  Country: US (occurrence: US)
  Receive Date: 20130207
  Receipt Date: 20130321
  Transmission Date: 20140127
  Serious: Yes (Death)
  Sender: FDA-Public Use
  Company Number: PHEH2013US003084

PATIENT
  Sex: Male

DRUGS (13)
  1. GLEEVEC [Suspect]
     Indication: CHRONIC MYELOID LEUKAEMIA
     Dosage: 100 MG, BID
     Route: 048
     Dates: start: 20120425
  2. COUMADINE [Concomitant]
     Dosage: UNK UKN, UNK
  3. IRON [Concomitant]
     Dosage: UNK UKN, UNK
  4. NAMENDA [Concomitant]
     Dosage: UNK UKN, UNK
  5. FOLIC ACID [Concomitant]
     Dosage: UNK UKN, UNK
  6. LEVOTHYROXINE [Concomitant]
     Dosage: UNK UKN, UNK
  7. SEROQUEL [Concomitant]
     Dosage: UNK UKN, UNK
  8. LESCOL XL [Concomitant]
     Dosage: UNK UKN, UNK
  9. ZETIA [Concomitant]
     Dosage: UNK UKN, UNK
  10. DIGOXIN [Concomitant]
     Dosage: UNK UKN, UNK
  11. CARVEDILOL [Concomitant]
     Dosage: UNK UKN, UNK
  12. AVAPRO [Concomitant]
     Dosage: UNK UKN, UNK
  13. NEXIUM I.V. [Concomitant]
     Dosage: UNK UKN, UNK

REACTIONS (1)
  - Death [Fatal]
